FAERS Safety Report 21816813 (Version 1)
Quarter: 2023Q1

REPORT INFORMATION
  Report Type: Report from Study
  Country: US (occurrence: US)
  Receive Date: 20230104
  Receipt Date: 20230104
  Transmission Date: 20230417
  Serious: Yes (Other)
  Sender: FDA-Public Use
  Company Number: US-MYLANLABS-2022M1141400

PATIENT

DRUGS (3)
  1. CARBOPLATIN [Suspect]
     Active Substance: CARBOPLATIN
     Indication: Neoplasm
     Dosage: UNK, CYCLE; AUC5; ON DAY 1 (3 WEEK CYCLE)
     Route: 065
  2. PACLITAXEL [Suspect]
     Active Substance: PACLITAXEL
     Indication: Neoplasm
     Dosage: 175 MILLIGRAM/SQ. METER, CYCLE; ON DAY 1 (3 WEEK CYCLE)
     Route: 065
  3. PEVONEDISTAT [Suspect]
     Active Substance: PEVONEDISTAT
     Indication: Neoplasm
     Dosage: 20 MILLIGRAM/SQ. METER, CYCLE; ON DAYS 1, 3, AND 5 OF 3 WEEK CYCLE (INFUSION)
     Route: 042

REACTIONS (4)
  - Alanine aminotransferase increased [Unknown]
  - Disease progression [Unknown]
  - Aspartate aminotransferase increased [Unknown]
  - Drug ineffective [Unknown]
